FAERS Safety Report 6760011-8 (Version None)
Quarter: 2010Q2

REPORT INFORMATION
  Report Type: 
  Country: None (occurrence: None)
  Receive Date: 20100608
  Receipt Date: 20100528
  Transmission Date: 20101027
  Serious: Yes (Hospitalization)
  Sender: FDA-Public Use
  Company Number: JP-NOVOPROD-309391

PATIENT
  Age: 60 Year
  Sex: Male

DRUGS (1)
  1. NOVOLIN N [Suspect]
     Indication: DRUG USE FOR UNKNOWN INDICATION
     Dosage: /SC
     Route: 058

REACTIONS (1)
  - PARALYSIS [None]
